FAERS Safety Report 23269035 (Version 1)
Quarter: 2023Q4

REPORT INFORMATION
  Report Type: Report from Study
  Country: CA (occurrence: CA)
  Receive Date: 20231206
  Receipt Date: 20231206
  Transmission Date: 20240109
  Serious: Yes (Other)
  Sender: FDA-Public Use
  Company Number: CA-ABBVIE-5522834

PATIENT
  Sex: Female

DRUGS (1)
  1. SKYRIZI [Suspect]
     Active Substance: RISANKIZUMAB-RZAA
     Indication: Crohn^s disease
     Route: 058
     Dates: start: 20230619

REACTIONS (4)
  - Surgery [Unknown]
  - Diarrhoea [Unknown]
  - Illness [Unknown]
  - Dysuria [Unknown]

NARRATIVE: CASE EVENT DATE: 20230101
